FAERS Safety Report 7734179-0 (Version None)
Quarter: 2011Q3

REPORT INFORMATION
  Report Type: 
  Country: None (occurrence: None)
  Receive Date: 20110901
  Receipt Date: 20110825
  Transmission Date: 20111222
  Serious: Yes (Hospitalization)
  Sender: FDA-Public Use
  Company Number: DKLU1072735

PATIENT
  Age: 2 Year
  Sex: Female

DRUGS (2)
  1. FRISTIUM (CLOBAZAM) [Suspect]
     Indication: PRODUCT USED FOR UNKNOWN INDICATION
     Dosage: 10 MG MILLIGRAM(S), Q 7:00AM; 5 MG MILLIGRAM(S), Q 3:00PM; 12.5 MG MILLIGRAM(S), Q 7:00PM
  2. SABRIL [Suspect]
     Dosage: 500 MG, MILLIGRAM(S), Q 7:00AM, ORAL; 750 MILLIGRAM(S),  7:00PM, ORAL
     Route: 048

REACTIONS (3)
  - EYE DISORDER [None]
  - URINARY TRACT INFECTION [None]
  - FUNGAL SKIN INFECTION [None]
